FAERS Safety Report 4881943-1 (Version None)
Quarter: 2006Q1

REPORT INFORMATION
  Report Type: 
  Country: None (occurrence: None)
  Receive Date: 20060117
  Receipt Date: 20051206
  Transmission Date: 20060701
  Serious: Yes (Hospitalization, Other)
  Sender: FDA-Public Use
  Company Number: US-AMGEN-US160439

PATIENT
  Sex: Female
  Weight: 73 kg

DRUGS (11)
  1. ARANESP [Suspect]
     Indication: ANAEMIA OF MALIGNANT DISEASE
     Route: 058
     Dates: start: 20051003, end: 20051215
  2. BACTRIM [Concomitant]
     Route: 048
     Dates: start: 20051206
  3. CIPROFLOXACIN [Concomitant]
     Route: 048
     Dates: end: 20051223
  4. PREDNISONE [Concomitant]
     Route: 048
  5. FOLIC ACID [Concomitant]
     Dates: start: 20050826
  6. HEXAVITAMIN [Concomitant]
     Dates: start: 20050826
  7. PROTONIX [Concomitant]
     Dates: start: 20050826
  8. PENTAMIDINE [Concomitant]
     Dates: start: 20050826, end: 20051206
  9. VORICONAZOLE [Concomitant]
     Dates: start: 20051206
  10. FAMVIR [Concomitant]
  11. FLAGYL [Concomitant]
     Dates: end: 20051223

REACTIONS (4)
  - APLASIA PURE RED CELL [None]
  - BONE MARROW FAILURE [None]
  - LUNG DISORDER [None]
  - PLEURAL EFFUSION [None]
